FAERS Safety Report 12234820 (Version 2)
Quarter: 2016Q2

REPORT INFORMATION
  Report Type: Spontaneous
  Country: US (occurrence: US)
  Receive Date: 20160404
  Receipt Date: 20160622
  Transmission Date: 20160815
  Serious: Yes (Other)
  Sender: FDA-Public Use
  Company Number: US-SA-2016SA066194

PATIENT
  Age: 58 Year
  Sex: Female

DRUGS (4)
  1. AMPYRA [Concomitant]
     Active Substance: DALFAMPRIDINE
  2. ASPIRIN. [Concomitant]
     Active Substance: ASPIRIN
  3. CLONAZEPAM. [Concomitant]
     Active Substance: CLONAZEPAM
  4. AUBAGIO [Suspect]
     Active Substance: TERIFLUNOMIDE
     Indication: MULTIPLE SCLEROSIS
     Route: 048
     Dates: start: 201603

REACTIONS (4)
  - Corneal transplant [Unknown]
  - Hyperhidrosis [Unknown]
  - Alopecia [Unknown]
  - Eye haemorrhage [Unknown]
